FAERS Safety Report 4941407-3 (Version None)
Quarter: 2006Q1

REPORT INFORMATION
  Report Type: 
  Country: None (occurrence: None)
  Receive Date: 20060313
  Receipt Date: 20050223
  Transmission Date: 20060701
  Serious: Yes (Hospitalization, Disabling)
  Sender: FDA-Public Use
  Company Number: US-MERCK-0502USA03496

PATIENT
  Age: 76 Year
  Sex: Female
  Weight: 80 kg

DRUGS (17)
  1. VIOXX [Suspect]
     Indication: ARTHRALGIA
     Route: 048
     Dates: start: 19990713, end: 20040901
  2. TYLENOL (CAPLET) [Concomitant]
     Route: 065
  3. PLAVIX [Concomitant]
     Route: 048
  4. FERROUS SULFATE TAB [Concomitant]
     Route: 065
  5. TOPROL-XL [Concomitant]
     Route: 048
  6. TAPAZOLE [Concomitant]
     Route: 048
  7. TENEX [Concomitant]
     Route: 065
  8. UNIVASC [Concomitant]
     Route: 065
  9. MAGNESIUM OXIDE [Concomitant]
     Route: 065
  10. PROTONIX [Concomitant]
     Route: 048
  11. PHENERGAN [Concomitant]
     Route: 065
  12. BISACODYL [Concomitant]
     Route: 065
  13. CLONIDINE [Concomitant]
     Route: 048
  14. ZELNORM [Concomitant]
     Route: 048
  15. COLACE [Concomitant]
     Route: 065
  16. BEXTRA [Concomitant]
     Route: 048
  17. MOEXIPRIL HYDROCHLORIDE [Concomitant]
     Route: 065

REACTIONS (10)
  - ABDOMINAL PAIN UPPER [None]
  - CEREBROVASCULAR ACCIDENT [None]
  - HYPOVOLAEMIA [None]
  - PYELONEPHRITIS ACUTE [None]
  - SCOLIOSIS [None]
  - SPINAL OSTEOARTHRITIS [None]
  - SYNCOPE [None]
  - TRANSIENT ISCHAEMIC ATTACK [None]
  - URINARY TRACT INFECTION [None]
  - VOMITING [None]
